FAERS Safety Report 5216239-1 (Version None)
Quarter: 2007Q1

REPORT INFORMATION
  Report Type: 
  Country: None (occurrence: None)
  Receive Date: 20070123
  Receipt Date: 20070117
  Transmission Date: 20070707
  Serious: Yes (Death)
  Sender: FDA-Public Use
  Company Number: US-ROXANE LABORATORIES, INC-2007-BP-00825RO

PATIENT
  Age: 65 Year
  Sex: Male

DRUGS (10)
  1. MIRTAZAPINE [Suspect]
  2. ETHANOL [Suspect]
  3. PAROXETINE HCL [Concomitant]
  4. ATENOLOL [Concomitant]
  5. LISINOPRIL [Concomitant]
  6. ZOLPIDEM TARTRATE [Concomitant]
  7. AZITHROMYCIN [Concomitant]
  8. TRAZODONE HCL [Concomitant]
  9. LORAZEPAM [Concomitant]
  10. ALPRAZOLAM [Concomitant]

REACTIONS (1)
  - DEATH [None]
